FAERS Safety Report 14169954 (Version 1)
Quarter: 2017Q4

REPORT INFORMATION
  Report Type: Spontaneous
  Country: US (occurrence: US)
  Receive Date: 20171108
  Receipt Date: 20171108
  Transmission Date: 20180321
  Serious: Yes (Other)
  Sender: FDA-Public Use
  Company Number: US-DRREDDYS-USA/USA/17/0094405

PATIENT
  Sex: Female

DRUGS (1)
  1. OLANZAPINE TABLETS 2.5 MG, 5 MG, 7.5 MG, 10 MG [Suspect]
     Active Substance: OLANZAPINE
     Indication: MENTAL DISORDER
     Route: 065

REACTIONS (9)
  - Hyperhidrosis [Unknown]
  - Muscle rigidity [Unknown]
  - Blood pressure abnormal [Unknown]
  - Seizure [Unknown]
  - Confusional state [Unknown]
  - Respiration abnormal [Unknown]
  - Pyrexia [Unknown]
  - Heart rate abnormal [Unknown]
  - Transient ischaemic attack [Unknown]
